FAERS Safety Report 7893039-5 (Version None)
Quarter: 2011Q4

REPORT INFORMATION
  Report Type: 
  Country: None (occurrence: None)
  Receive Date: 20111104
  Receipt Date: 20111025
  Transmission Date: 20120403
  Serious: Yes (Hospitalization)
  Sender: FDA-Public Use
  Company Number: BR-GENZYME-FABR-1002195

PATIENT
  Sex: Male

DRUGS (4)
  1. FABRAZYME [Suspect]
     Indication: FABRY'S DISEASE
     Dosage: 1 MG/KG, Q2W
     Route: 042
  2. FABRAZYME [Suspect]
     Dosage: UNK
     Route: 042
  3. FABRAZYME [Suspect]
     Dosage: 1 MG/KG, UNK
     Dates: start: 20050101
  4. ANTI-HYPERTENSIVE MEDICATION [Concomitant]
     Indication: HYPERTENSION

REACTIONS (4)
  - PAIN [None]
  - PAIN IN EXTREMITY [None]
  - URINARY RETENTION [None]
  - ASTHENIA [None]
